FAERS Safety Report 4853060-8 (Version None)
Quarter: 2005Q4

REPORT INFORMATION
  Report Type: 
  Country: None (occurrence: None)
  Receive Date: 20051214
  Receipt Date: 20051031
  Transmission Date: 20060501
  Serious: Yes (Other)
  Sender: FDA-Public Use
  Company Number: JP-AVENTIS-200513210JP

PATIENT
  Age: 52 Year
  Sex: Male
  Weight: 72 kg

DRUGS (8)
  1. ARAVA [Suspect]
     Indication: RHEUMATOID ARTHRITIS
     Route: 048
     Dates: start: 20050722, end: 20050925
  2. PREDONINE [Concomitant]
     Route: 048
     Dates: start: 20040524
  3. LOXONIN [Concomitant]
     Dosage: DOSE: 2 TABLETS
     Route: 048
     Dates: start: 20040524
  4. RHEUMATREX [Concomitant]
     Dosage: DOSE: 8 MG/WEEK
     Route: 048
     Dates: start: 20040524
  5. VOLTAREN [Concomitant]
     Route: 054
     Dates: start: 20040611, end: 20050421
  6. VOLTAREN [Concomitant]
     Dosage: DOSE: 2 TABLETS
     Route: 048
     Dates: start: 20050610
  7. KETOPROFEN [Concomitant]
     Route: 062
     Dates: start: 20040611
  8. SELTOUCH [Concomitant]
     Route: 062
     Dates: start: 20040813

REACTIONS (3)
  - ALANINE AMINOTRANSFERASE INCREASED [None]
  - ASPARTATE AMINOTRANSFERASE INCREASED [None]
  - BLOOD LACTATE DEHYDROGENASE INCREASED [None]
